FAERS Safety Report 22091621 (Version 3)
Quarter: 2023Q2

REPORT INFORMATION
  Report Type: Report from Study
  Country: CN (occurrence: None)
  Receive Date: 20230314
  Receipt Date: 20230417
  Transmission Date: 20230721
  Serious: Yes (Death)
  Sender: FDA-Public Use
  Company Number: CN-ROCHE-3307048

PATIENT
  Age: 57 Year
  Sex: Female
  Weight: 57 kg

DRUGS (2)
  1. ATEZOLIZUMAB [Suspect]
     Active Substance: ATEZOLIZUMAB
     Indication: Hepatocellular carcinoma
     Dosage: SUBSEQUENT DOSE GIVEN ON 22/JUN/2022, 12/JUL/2022, 02/AUG/2022, 28/SEP/2022
     Route: 041
     Dates: start: 20220530, end: 20220530
  2. BEVACIZUMAB [Suspect]
     Active Substance: BEVACIZUMAB
     Indication: Hepatocellular carcinoma
     Dosage: SUBSEQUENT DOSE WAS GIVEN ON 22/JUN/2022, 12/JUL/2022, 28/SEP/2022
     Route: 042
     Dates: start: 20220530, end: 20220530

REACTIONS (2)
  - Death [Fatal]
  - Coma [Fatal]

NARRATIVE: CASE EVENT DATE: 20221218
